FAERS Safety Report 5403006-9 (Version None)
Quarter: 2007Q3

REPORT INFORMATION
  Report Type: 
  Country: None (occurrence: None)
  Receive Date: 20070713
  Receipt Date: 20060711
  Transmission Date: 20080115
  Serious: Yes (Hospitalization)
  Sender: FDA-Public Use
  Company Number: 455363

PATIENT
  Age: 56 Year
  Sex: Female
  Weight: 48.1 kg

DRUGS (4)
  1. BONIVA [Suspect]
     Indication: OSTEOPOROSIS
     Dosage: 150 MG 1 PER 1 MONTH ORAL
     Route: 048
     Dates: start: 20050715
  2. LIPITOR [Concomitant]
  3. FEMARA [Concomitant]
  4. MUCINEX [Concomitant]

REACTIONS (2)
  - GASTRIC ULCER [None]
  - HYPOTENSION [None]
